FAERS Safety Report 6445097-2 (Version None)
Quarter: 2009Q4

REPORT INFORMATION
  Report Type: 
  Country: None (occurrence: None)
  Receive Date: 20091118
  Receipt Date: 20091109
  Transmission Date: 20100525
  Serious: Yes (Death)
  Sender: FDA-Public Use
  Company Number: JP-BRISTOL-MYERS SQUIBB COMPANY-14850960

PATIENT
  Age: 4 Year
  Sex: Female

DRUGS (1)
  1. VEPESID [Suspect]
     Indication: HEPATITIS FULMINANT

REACTIONS (2)
  - CYTOMEGALOVIRUS INFECTION [None]
  - TRANSPLANT FAILURE [None]
